FAERS Safety Report 10479694 (Version 1)
Quarter: 2014Q3

REPORT INFORMATION
  Report Type: Spontaneous
  Country: US (occurrence: None)
  Receive Date: 20140925
  Receipt Date: 20140925
  Transmission Date: 20150326
  Serious: Yes (Other)
  Sender: FDA-Public Use
  Company Number: 2014HINLIT0850

PATIENT
  Age: 47 Year
  Sex: Male

DRUGS (5)
  1. INDINAVIR [Suspect]
     Active Substance: INDINAVIR
     Indication: HIV INFECTION
  2. DIDANOSINE. [Suspect]
     Active Substance: DIDANOSINE
     Indication: HIV INFECTION
  3. STAVUDINE. [Suspect]
     Active Substance: STAVUDINE
     Indication: HIV INFECTION
  4. ZIDOVUDINE. [Suspect]
     Active Substance: ZIDOVUDINE
     Indication: HIV INFECTION
  5. BUDESONIDE. [Suspect]
     Active Substance: BUDESONIDE
     Indication: PRODUCT USED FOR UNKNOWN INDICATION
     Dosage: 1600-3200

REACTIONS (5)
  - Abdominal distension [None]
  - Cushing^s syndrome [None]
  - Muscular weakness [None]
  - Pain [None]
  - Drug interaction [None]
